FAERS Safety Report 23611752 (Version 1)
Quarter: 2024Q1

REPORT INFORMATION
  Report Type: Spontaneous
  Country: US (occurrence: US)
  Receive Date: 20240308
  Receipt Date: 20240308
  Transmission Date: 20240410
  Serious: Yes (Hospitalization)
  Sender: FDA-Public Use
  Company Number: US-BAYER-2024A035129

PATIENT
  Age: 65 Year
  Sex: Female

DRUGS (3)
  1. CIPROFLOXACIN [Suspect]
     Active Substance: CIPROFLOXACIN
     Indication: Sinusitis
  2. RITUXAN [Concomitant]
     Active Substance: RITUXIMAB
  3. AVAPRO [Concomitant]
     Active Substance: IRBESARTAN

REACTIONS (1)
  - Clostridium difficile infection [Recovered/Resolved]
